FAERS Safety Report 5420801-0 (Version None)
Quarter: 2007Q3

REPORT INFORMATION
  Report Type: 
  Country: None (occurrence: None)
  Receive Date: 20070816
  Receipt Date: 20070802
  Transmission Date: 20080115
  Serious: Yes (Hospitalization, Other)
  Sender: FDA-Public Use
  Company Number: 2007JP003018

PATIENT
  Sex: Male
  Weight: 69.8 kg

DRUGS (11)
  1. PROGRAF [Suspect]
     Indication: MYASTHENIA GRAVIS
     Dosage: 3 MG,  ; 2 MG, UID/QD, ORAL
     Route: 048
     Dates: end: 20051211
  2. PROGRAF [Suspect]
     Indication: MYASTHENIA GRAVIS
     Dosage: 3 MG,  ; 2 MG, UID/QD, ORAL
     Route: 048
     Dates: start: 20030911
  3. PREDNISOLONE [Concomitant]
  4. SULFASALAZINE [Concomitant]
  5. MESALAZINE [Concomitant]
  6. CEFOPERAZONE SODIUM/SULBACTAM SODIUM [Concomitant]
  7. SOLUTIONS FOR PARENTERAL NUTRITION [Concomitant]
  8. SULTAMICILLIN [Concomitant]
  9. PREDNISOLONE [Concomitant]
  10. GASTER D ORODISPERSABLE CR TABLET [Concomitant]
  11. LOSARTAN POTASSIUM [Concomitant]

REACTIONS (6)
  - COLITIS ULCERATIVE [None]
  - DIABETES MELLITUS [None]
  - DRUG ERUPTION [None]
  - ERYSIPELAS [None]
  - INFECTION [None]
  - OBESITY [None]
